FAERS Safety Report 25396523 (Version 1)
Quarter: 2025Q2

REPORT INFORMATION
  Report Type: Report from Study
  Country: US (occurrence: US)
  Receive Date: 20250604
  Receipt Date: 20250604
  Transmission Date: 20250717
  Serious: Yes (Other)
  Sender: ABBVIE
  Company Number: US-ABBVIE-6305742

PATIENT
  Sex: Male

DRUGS (1)
  1. SKYRIZI [Suspect]
     Active Substance: RISANKIZUMAB-RZAA
     Indication: Crohn^s disease
     Route: 058
     Dates: start: 20240321

REACTIONS (4)
  - Gastrointestinal obstruction [Recovering/Resolving]
  - Pain [Recovering/Resolving]
  - Post procedural complication [Unknown]
  - Weight decreased [Recovering/Resolving]
